FAERS Safety Report 4901204-1 (Version None)
Quarter: 2006Q1

REPORT INFORMATION
  Report Type: 
  Country: None (occurrence: None)
  Receive Date: 20060201
  Receipt Date: 20060123
  Transmission Date: 20060701
  Serious: Yes (Hospitalization)
  Sender: FDA-Public Use
  Company Number: 200610106BWH

PATIENT
  Age: 55 Year
  Sex: Female
  Weight: 56.246 kg

DRUGS (15)
  1. SORAFENIB [Suspect]
     Indication: METASTATIC RENAL CELL CARCINOMA
     Dosage: 400 MG, BID, ORAL
     Route: 048
     Dates: start: 20051215, end: 20051229
  2. LUNESTA [Concomitant]
  3. PERCOCET [Concomitant]
  4. IMODIUM [Concomitant]
  5. COMPAZINE [Concomitant]
  6. ATIVAN [Concomitant]
  7. DILAUDID [Concomitant]
  8. K-DUR 10 [Concomitant]
  9. TAZIDIME [Concomitant]
  10. ASCORBIC ACID [Concomitant]
  11. VITAMIN A [Concomitant]
  12. ZINC SULFATE [Concomitant]
  13. OXYCONTIN [Concomitant]
  14. DURAGESIC-100 [Concomitant]
  15. PROTONIX [Concomitant]

REACTIONS (12)
  - BACTERIAL INFECTION [None]
  - BLOOD PRESSURE DECREASED [None]
  - COLONIC POLYP [None]
  - CULTURE STOOL POSITIVE [None]
  - DECUBITUS ULCER [None]
  - DEHYDRATION [None]
  - DIARRHOEA [None]
  - GASTRITIS [None]
  - OCCULT BLOOD POSITIVE [None]
  - PAIN IN EXTREMITY [None]
  - PULMONARY OEDEMA [None]
  - RENAL FAILURE [None]
